FAERS Safety Report 7741118-5 (Version None)
Quarter: 2011Q3

REPORT INFORMATION
  Report Type: 
  Country: None (occurrence: None)
  Receive Date: 20110909
  Receipt Date: 20110906
  Transmission Date: 20111222
  Serious: No
  Sender: FDA-Public Use
  Company Number: US-BAYER-2011-082096

PATIENT
  Age: 68 Year
  Sex: Female

DRUGS (1)
  1. EOVIST [Suspect]
     Indication: NUCLEAR MAGNETIC RESONANCE IMAGING
     Dosage: 8 ML, UNK
     Dates: start: 20110906, end: 20110906

REACTIONS (1)
  - URTICARIA [None]
